FAERS Safety Report 23849240 (Version 1)
Quarter: 2024Q2

REPORT INFORMATION
  Report Type: Other
  Country: TR (occurrence: TR)
  Receive Date: 20240513
  Receipt Date: 20240513
  Transmission Date: 20240715
  Serious: Yes (Death, Life-Threatening, Hospitalization, Other)
  Sender: FDA-Public Use
  Company Number: TR-ASTELLAS-2024US013672

PATIENT
  Age: 41 Year
  Sex: Male

DRUGS (3)
  1. ROXADUSTAT [Suspect]
     Active Substance: ROXADUSTAT
     Indication: Nephrogenic anaemia
     Route: 048
     Dates: start: 20240205, end: 20240410
  2. TACROLIMUS [Suspect]
     Active Substance: TACROLIMUS
     Indication: Immunosuppression
     Dosage: UNK UNK, UNKNOWN FREQ.
     Route: 065
     Dates: start: 2014, end: 202304
  3. MYCOPHENOLATE MOFETIL [Suspect]
     Active Substance: MYCOPHENOLATE MOFETIL
     Indication: Immunosuppression
     Dosage: UNK UNK, UNKNOWN FREQ.
     Route: 065
     Dates: start: 2014, end: 202304

REACTIONS (6)
  - Cholestasis [Fatal]
  - Condition aggravated [Fatal]
  - Kidney transplant rejection [Unknown]
  - Jaundice [Unknown]
  - Faeces pale [Unknown]
  - Weight decreased [Unknown]

NARRATIVE: CASE EVENT DATE: 20230401
